FAERS Safety Report 16799078 (Version 1)
Quarter: 2019Q3

REPORT INFORMATION
  Report Type: Spontaneous
  Country: DE (occurrence: DE)
  Receive Date: 20190912
  Receipt Date: 20190912
  Transmission Date: 20191005
  Serious: Yes (Other)
  Sender: FDA-Public Use
  Company Number: DE-TEVA-2019-DE-1106407

PATIENT
  Age: 84 Year
  Sex: Female

DRUGS (4)
  1. BAYOTENSIN [Concomitant]
     Active Substance: NITRENDIPINE
     Dosage: AS REQUIRED
     Route: 065
  2. LOSARTAN-RATIOPHARM 50 MG FILMTABLETTEN [Suspect]
     Active Substance: LOSARTAN
     Indication: HYPERTENSION
     Dosage: 100 MILLIGRAM DAILY; 1-0-1
     Route: 048
     Dates: start: 2017, end: 20190910
  3. BISOPROLOL 2.5MG [Concomitant]
     Active Substance: BISOPROLOL
     Dosage: 5 MILLIGRAM DAILY; 1-0-1 FOR YEARS
     Route: 048
  4. TAVOR [Concomitant]
     Indication: SLEEP DISORDER
     Route: 065

REACTIONS (2)
  - Blood pressure increased [Recovered/Resolved]
  - Therapeutic product effect incomplete [Unknown]

NARRATIVE: CASE EVENT DATE: 20190823
